FAERS Safety Report 9013544 (Version 2)
Quarter: 2013Q1

REPORT INFORMATION
  Report Type: Spontaneous
  Country: GB (occurrence: GB)
  Receive Date: 20130115
  Receipt Date: 20130315
  Transmission Date: 20140127
  Serious: Yes (Death)
  Sender: FDA-Public Use
  Company Number: PHFR2013GB000618

PATIENT
  Sex: Male

DRUGS (8)
  1. CLOZARIL [Suspect]
     Indication: SCHIZOPHRENIA, PARANOID TYPE
     Dosage: 875 MG, UNK
     Route: 048
     Dates: start: 20010701
  2. OMEPRAZOLE [Concomitant]
     Dosage: 20 MG, UNK
     Route: 048
  3. WARFARIN [Concomitant]
     Dosage: AS PER INR
     Route: 048
  4. ERYTHROMYCIN [Concomitant]
     Dosage: 500 MG, UNK
     Route: 048
  5. SALBUTAMOL [Concomitant]
     Dosage: 100 MG, UNK
     Route: 048
  6. FERRIC SULFATE [Concomitant]
     Dosage: 200 MG, UNK
     Route: 048
  7. AMISULPRIDE [Concomitant]
     Dosage: 250 MG, UNK
     Route: 048
  8. ESCITALOPRAM [Concomitant]
     Dosage: 20 MG, UNK
     Route: 048

REACTIONS (1)
  - Multi-organ failure [Fatal]
